FAERS Safety Report 13175400 (Version 1)
Quarter: 2017Q1

REPORT INFORMATION
  Report Type: Spontaneous
  Country: GB (occurrence: GB)
  Receive Date: 20170201
  Receipt Date: 20170201
  Transmission Date: 20170428
  Serious: Yes (Hospitalization)
  Sender: FDA-Public Use
  Company Number: GB-BIOGEN-2017BI00351451

PATIENT
  Sex: Female

DRUGS (1)
  1. AVONEX [Suspect]
     Active Substance: INTERFERON BETA-1A
     Indication: MULTIPLE SCLEROSIS
     Route: 030
     Dates: start: 20150626

REACTIONS (6)
  - Cerebral thrombosis [Unknown]
  - Amnesia [Unknown]
  - Cognitive disorder [Unknown]
  - Emotional distress [Unknown]
  - Drug dose omission [Recovered/Resolved]
  - Memory impairment [Unknown]
